FAERS Safety Report 9196915 (Version 1)
Quarter: 2013Q1

REPORT INFORMATION
  Report Type: Spontaneous
  Country: US (occurrence: None)
  Receive Date: 20120709
  Receipt Date: 20120709
  Transmission Date: 20140127
  Serious: Yes (Other)
  Sender: FDA-Public Use
  Company Number: PHEH2012US001889

PATIENT
  Sex: Male

DRUGS (2)
  1. GLEEVEC [Concomitant]
     Indication: GASTROINTESTINAL STROMAL TUMOUR
     Route: 048
     Dates: start: 20090523
  2. COUMADIN (WARFIARIN SODIUM) [Concomitant]

REACTIONS (4)
  - Neoplasm progression [None]
  - Myalgia [None]
  - Muscle spasms [None]
  - Neoplasm malignant [None]
